FAERS Safety Report 4580052-9 (Version None)
Quarter: 2005Q1

REPORT INFORMATION
  Report Type: 
  Country: None (occurrence: None)
  Receive Date: 20050127
  Receipt Date: 20040927
  Transmission Date: 20050727
  Serious: No
  Sender: FDA-Public Use
  Company Number: USA040979439

PATIENT
  Age: 10 Year
  Sex: Male
  Weight: 30 kg

DRUGS (3)
  1. STRATTERA [Suspect]
     Indication: AUTISM
     Dosage: 25 MG DAY
     Dates: start: 20040801
  2. LEXAPRO [Concomitant]
  3. RISPERDAL [Concomitant]

REACTIONS (1)
  - TIC [None]
